FAERS Safety Report 4876211-8 (Version None)
Quarter: 2005Q4

REPORT INFORMATION
  Report Type: 
  Country: None (occurrence: None)
  Receive Date: 20051207
  Receipt Date: 20041111
  Transmission Date: 20060501
  Serious: Yes (Death)
  Sender: FDA-Public Use
  Company Number: 386280

PATIENT
  Age: 41 Year
  Sex: Female

DRUGS (2)
  1. DIAZEPAM [Suspect]
  2. NORDIAZEPAM (NORDAZEPAM) [Suspect]

REACTIONS (1)
  - DEATH [None]
